FAERS Safety Report 5264336-7 (Version None)
Quarter: 2007Q1

REPORT INFORMATION
  Report Type: 
  Country: None (occurrence: None)
  Receive Date: 20061213
  Receipt Date: 20050223
  Transmission Date: 20070707
  Serious: Yes (Other)
  Sender: FDA-Public Use
  Company Number: 2005UW01145

PATIENT
  Age: 72 Year
  Sex: Male
  Weight: 101.15 kg

DRUGS (10)
  1. IRESSA [Suspect]
     Indication: NON-SMALL CELL LUNG CANCER
     Dates: start: 20040701
  2. ALLOPURINOL [Concomitant]
  3. INSULIN [Concomitant]
  4. ASPIRIN [Concomitant]
  5. LIPITOR [Concomitant]
  6. LISINOPRIL [Concomitant]
  7. SOMA [Concomitant]
  8. NEURONTIN [Concomitant]
  9. PREDNISONE [Concomitant]
  10. ENDOCET [Concomitant]

REACTIONS (3)
  - PAIN IN EXTREMITY [None]
  - PNEUMONIA [None]
  - RASH MACULO-PAPULAR [None]
